FAERS Safety Report 12262247 (Version 3)
Quarter: 2016Q2

REPORT INFORMATION
  Report Type: Spontaneous
  Country: US (occurrence: US)
  Receive Date: 20160413
  Receipt Date: 20160617
  Transmission Date: 20160815
  Serious: No
  Sender: FDA-Public Use
  Company Number: US-009507513-1604USA007928

PATIENT
  Age: 21 Year
  Sex: Female
  Weight: 51.7 kg

DRUGS (1)
  1. NEXPLANON [Suspect]
     Active Substance: ETONOGESTREL
     Indication: CONTRACEPTION
     Dosage: 68 MG, ONE ROD PER 3 YEAR
     Route: 059
     Dates: start: 20151002, end: 20160411

REACTIONS (5)
  - Menorrhagia [Recovered/Resolved]
  - Device kink [Recovered/Resolved]
  - Device breakage [Recovered/Resolved]
  - Emotional disorder [Recovered/Resolved]
  - Device difficult to use [Recovered/Resolved]

NARRATIVE: CASE EVENT DATE: 201510
